APPROVED DRUG PRODUCT: BRINZOLAMIDE
Active Ingredient: BRINZOLAMIDE
Strength: 1%
Dosage Form/Route: SUSPENSION/DROPS;OPHTHALMIC
Application: A209406 | Product #001 | TE Code: AB
Applicant: WATSON LABORATORIES INC
Approved: Nov 27, 2020 | RLD: No | RS: No | Type: RX